FAERS Safety Report 6221360-5 (Version None)
Quarter: 2009Q2

REPORT INFORMATION
  Report Type: 
  Country: None (occurrence: None)
  Receive Date: 20090610
  Receipt Date: 20090522
  Transmission Date: 20091009
  Serious: Yes (Other)
  Sender: FDA-Public Use
  Company Number: JP-AVENTIS-200813876JP

PATIENT
  Age: 78 Year
  Sex: Female
  Weight: 51 kg

DRUGS (6)
  1. ENOXAPARIN SODIUM [Suspect]
     Route: 058
     Dates: start: 20081210, end: 20081216
  2. LOXONIN                            /00890701/ [Concomitant]
     Dosage: DOSE: 1 TABLET
     Route: 048
     Dates: start: 20081209
  3. MUCOSTA [Concomitant]
     Dosage: DOSE: 1 TABLET
     Route: 048
     Dates: start: 20081209
  4. NORVASC [Concomitant]
     Dosage: DOSE: 1 TABLET
     Route: 048
  5. RENIVACE [Concomitant]
     Dosage: DOSE: 1 TABLET
     Route: 048
  6. LOCHOL                             /00638501/ [Concomitant]
     Dosage: DOSE: 1 TABLET
     Route: 048

REACTIONS (2)
  - CHOLESTATIC LIVER INJURY [None]
  - HEPATIC FUNCTION ABNORMAL [None]
